FAERS Safety Report 8798781 (Version 2)
Quarter: 2012Q4

REPORT INFORMATION
  Report Type: 
  Country: US (occurrence: US)
  Receive Date: 20120920
  Receipt Date: 20121030
  Transmission Date: 20130627
  Serious: No
  Sender: FDA-Public Use
  Company Number: US-009507513-1209USA005357

PATIENT
  Sex: Male

DRUGS (1)
  1. INVESTIGATIONAL DRUG [Suspect]
     Dosage: UNK
     Route: 048
     Dates: end: 2012

REACTIONS (2)
  - Diarrhoea [Recovering/Resolving]
  - Malaise [Recovering/Resolving]
